FAERS Safety Report 15263694 (Version 1)
Quarter: 2018Q3

REPORT INFORMATION
  Report Type: Spontaneous
  Country: US (occurrence: US)
  Receive Date: 20180810
  Receipt Date: 20180810
  Transmission Date: 20181010
  Serious: No
  Sender: FDA-Public Use
  Company Number: US-PFIZER INC-2018321248

PATIENT
  Age: 60 Year
  Sex: Male

DRUGS (2)
  1. AMIODARONE HCL [Suspect]
     Active Substance: AMIODARONE HYDROCHLORIDE
     Dosage: UNK
  2. ETOMIDATE. [Suspect]
     Active Substance: ETOMIDATE
     Dosage: UNK

REACTIONS (1)
  - Drug hypersensitivity [Unknown]
